FAERS Safety Report 15834219 (Version 2)
Quarter: 2019Q1

REPORT INFORMATION
  Report Type: Spontaneous
  Country: US (occurrence: US)
  Receive Date: 20190116
  Receipt Date: 20190308
  Transmission Date: 20190417
  Serious: Yes (Other)
  Sender: FDA-Public Use
  Company Number: US-ENDO PHARMACEUTICALS INC-2019-100042

PATIENT
  Sex: Female

DRUGS (2)
  1. ANALGESICS [Concomitant]
     Active Substance: UNSPECIFIED INGREDIENT
     Indication: ANALGESIC THERAPY
     Dosage: UNK UNKNOWN, UNKNOWN
     Route: 065
  2. HYDROCORTISONE. [Suspect]
     Active Substance: HYDROCORTISONE
     Indication: ADRENAL INSUFFICIENCY
     Dosage: 5 MG, UNKNOWN
     Route: 048

REACTIONS (5)
  - Drug ineffective [Unknown]
  - Therapeutic response changed [Unknown]
  - Blood cholesterol increased [Unknown]
  - Adrenocortical insufficiency acute [Unknown]
  - Hypertension [Unknown]
